FAERS Safety Report 5663614-7 (Version None)
Quarter: 2008Q1

REPORT INFORMATION
  Report Type: 
  Country: None (occurrence: None)
  Receive Date: 20080313
  Receipt Date: 20080303
  Transmission Date: 20080703
  Serious: Yes (Hospitalization)
  Sender: FDA-Public Use
  Company Number: US-ABBOTT-08P-163-0440809-00

PATIENT
  Sex: Female

DRUGS (1)
  1. SYNTHROID [Suspect]
     Indication: HYPOTHYROIDISM
     Route: 050
     Dates: start: 20030101

REACTIONS (8)
  - ASTHENIA [None]
  - BLOOD THYROID STIMULATING HORMONE INCREASED [None]
  - FATIGUE [None]
  - FEEDING TUBE COMPLICATION [None]
  - GASTRIC DISORDER [None]
  - NEUTROPENIA [None]
  - SEPSIS [None]
  - TONGUE NEOPLASM MALIGNANT STAGE UNSPECIFIED [None]
